FAERS Safety Report 8049286-5 (Version None)
Quarter: 2012Q1

REPORT INFORMATION
  Report Type: 
  Country: None (occurrence: None)
  Receive Date: 20120117
  Receipt Date: 20120113
  Transmission Date: 20120608
  Serious: Yes (Death)
  Sender: FDA-Public Use
  Company Number: EG-ROCHE-1025477

PATIENT
  Age: 70 Year
  Sex: Male
  Weight: 63 kg

DRUGS (2)
  1. XELODA [Suspect]
     Indication: ADENOCARCINOMA
     Route: 048
     Dates: start: 20111025
  2. AVASTIN [Suspect]
     Indication: ADENOCARCINOMA
     Route: 041
     Dates: start: 20111025

REACTIONS (6)
  - ABDOMINAL PAIN [None]
  - DECREASED APPETITE [None]
  - AORTIC ANEURYSM [None]
  - WEIGHT DECREASED [None]
  - CONSTIPATION [None]
  - DEPRESSION [None]
